FAERS Safety Report 25545506 (Version 1)
Quarter: 2025Q3

REPORT INFORMATION
  Report Type: Report from Study
  Country: US (occurrence: US)
  Receive Date: 20250711
  Receipt Date: 20250711
  Transmission Date: 20251020
  Serious: Yes (Death)
  Sender: EISAI
  Company Number: US-Eisai-EC-2025-191686

PATIENT
  Age: 64 Year
  Sex: Male
  Weight: 134 kg

DRUGS (20)
  1. LENVIMA [Suspect]
     Active Substance: LENVATINIB
     Indication: Hepatocellular carcinoma
     Dates: start: 20250519, end: 20250616
  2. ALBUTEROL SULFATE [Concomitant]
     Active Substance: ALBUTEROL SULFATE
  3. ELIQUIS [Concomitant]
     Active Substance: APIXABAN
  4. FUROSEMIDE [Concomitant]
     Active Substance: FUROSEMIDE
  5. GABAPENTIN [Concomitant]
     Active Substance: GABAPENTIN
  6. LACTULOSE [Concomitant]
     Active Substance: LACTULOSE
  7. LEVOTHYROXINE [Concomitant]
     Active Substance: LEVOTHYROXINE
  8. LISINOPRIL [Concomitant]
     Active Substance: LISINOPRIL
  9. LOSARTAN [Concomitant]
     Active Substance: LOSARTAN
  10. MAGNESIUM CITRATE [Concomitant]
     Active Substance: MAGNESIUM CITRATE
  11. METOPROLOL SUCCINATE [Concomitant]
     Active Substance: METOPROLOL SUCCINATE
  12. MS CONTIN [Concomitant]
     Active Substance: MORPHINE SULFATE
  13. OMEPRAZOLE [Concomitant]
     Active Substance: OMEPRAZOLE
  14. OXYCODONE [Concomitant]
     Active Substance: OXYCODONE
  15. PROCHLORPERAZINE [Concomitant]
     Active Substance: PROCHLORPERAZINE
  16. SENNOSIDES [Concomitant]
     Active Substance: SENNOSIDES
  17. SILDENAFIL [Concomitant]
     Active Substance: SILDENAFIL
  18. TAMSULOSIN [Concomitant]
     Active Substance: TAMSULOSIN
  19. ZOFRAN [Concomitant]
     Active Substance: ONDANSETRON HYDROCHLORIDE
  20. LORATADINE [Concomitant]
     Active Substance: LORATADINE

REACTIONS (4)
  - Malignant neoplasm progression [Fatal]
  - Vomiting [Unknown]
  - Asthenia [Unknown]
  - Nausea [Unknown]

NARRATIVE: CASE EVENT DATE: 20250622
